FAERS Safety Report 8342343-5 (Version None)
Quarter: 2012Q2

REPORT INFORMATION
  Report Type: 
  Country: None (occurrence: None)
  Receive Date: 20120508
  Receipt Date: 20120502
  Transmission Date: 20120825
  Serious: Yes (Hospitalization)
  Sender: FDA-Public Use
  Company Number: US-AMGEN-USASP2011034259

PATIENT
  Age: 33 Year
  Sex: Male
  Weight: 98.866 kg

DRUGS (3)
  1. DECADRON [Concomitant]
     Indication: IDIOPATHIC THROMBOCYTOPENIC PURPURA
  2. NPLATE [Suspect]
     Indication: IDIOPATHIC THROMBOCYTOPENIC PURPURA
     Dosage: 250 MUG, UNK
     Dates: start: 20110401, end: 20110509
  3. MULTI-VITAMINS [Concomitant]

REACTIONS (3)
  - EPISTAXIS [None]
  - THROMBOCYTOPENIA [None]
  - MOUTH HAEMORRHAGE [None]
